FAERS Safety Report 9236407 (Version 2)
Quarter: 2013Q2

REPORT INFORMATION
  Report Type: Spontaneous
  Country: US (occurrence: US)
  Receive Date: 20130417
  Receipt Date: 20130417
  Transmission Date: 20140414
  Serious: No
  Sender: FDA-Public Use
  Company Number: US-PFIZER INC-2013089381

PATIENT
  Age: 62 Year
  Sex: Male

DRUGS (13)
  1. INLYTA [Suspect]
     Indication: METASTATIC RENAL CELL CARCINOMA
     Dosage: 5 MG, 2X/DAY (EVERY 12 HOURS)
     Route: 048
     Dates: start: 20121105, end: 20130308
  2. CYMBALTA [Concomitant]
     Dosage: UNK
     Dates: start: 20130116
  3. PROCHLORPERAZINE EDISYLATE [Concomitant]
     Dosage: UNK
     Dates: start: 20121112
  4. ANUSOL HC [Concomitant]
     Dosage: UNK
     Dates: start: 20120416
  5. DOXYCYCLINE HYCLATE [Concomitant]
     Dosage: UNK
     Dates: start: 20120220
  6. LEVOTHYROXINE SODIUM [Concomitant]
     Dosage: 225 MG, DAILY ON M-T
     Dates: start: 20120402
  7. MORPHINE SULFATE [Concomitant]
     Dosage: UNK
     Dates: start: 20120220
  8. MORPHINE SULFATE [Concomitant]
     Dosage: UNK
     Dates: start: 20111025, end: 20130116
  9. PENICILLIN V POTASSIUM [Concomitant]
     Dosage: UNK
     Dates: start: 20121112
  10. NUCYNTA [Concomitant]
     Dosage: 100 MG, EVERY 4 HRS
     Route: 048
     Dates: start: 20120312, end: 20130215
  11. DEXAMETHASONE [Concomitant]
     Dosage: UNK
     Dates: start: 20130116
  12. DEXAMETHASONE [Concomitant]
     Dosage: UNK
     Dates: start: 20130118
  13. HYDROCHLOROTHIAZIDE [Concomitant]
     Dosage: 25 MG, 1X/DAY
     Dates: start: 20120326, end: 20130321

REACTIONS (2)
  - Disease progression [Not Recovered/Not Resolved]
  - Renal cancer [Not Recovered/Not Resolved]
